FAERS Safety Report 24910671 (Version 1)
Quarter: 2025Q1

REPORT INFORMATION
  Report Type: Spontaneous
  Country: FR (occurrence: FR)
  Receive Date: 20250131
  Receipt Date: 20250131
  Transmission Date: 20250409
  Serious: Yes (Other)
  Sender: PFIZER
  Company Number: None

PATIENT
  Age: 60 Year
  Sex: Female
  Weight: 94 kg

DRUGS (1)
  1. XELJANZ [Suspect]
     Active Substance: TOFACITINIB CITRATE
     Indication: Lichen planus
     Dosage: 2 DF, 1X/DAY
     Route: 048
     Dates: start: 20240923, end: 20241223

REACTIONS (4)
  - Hot flush [Recovering/Resolving]
  - Muscular weakness [Recovering/Resolving]
  - Dyspnoea exertional [Recovering/Resolving]
  - Off label use [Unknown]

NARRATIVE: CASE EVENT DATE: 20240901
